FAERS Safety Report 5140856-0 (Version None)
Quarter: 2006Q4

REPORT INFORMATION
  Report Type: 
  Country: None (occurrence: None)
  Receive Date: 20061025
  Receipt Date: 20061010
  Transmission Date: 20070319
  Serious: Yes (Other)
  Sender: FDA-Public Use
  Company Number: STI-2006-00549

PATIENT
  Age: 14 Year
  Sex: Male

DRUGS (3)
  1. 516B DUAC (CLINDAMYCIN + BENZOYL PERIXIDE) (BENZOYL PEROXIDE W/ CLINDA [Suspect]
     Indication: ACNE
     Dosage: 1 APP, IN MORNING, TOPICAL
     Route: 061
  2. DOXYCYCLINE [Concomitant]
  3. RETIN-A (TRETINOIN) [Concomitant]

REACTIONS (2)
  - HYPERSENSITIVITY [None]
  - TREATMENT NONCOMPLIANCE [None]
